FAERS Safety Report 25890398 (Version 1)
Quarter: 2025Q4

REPORT INFORMATION
  Report Type: Spontaneous
  Country: US (occurrence: None)
  Receive Date: 20251007
  Receipt Date: 20251007
  Transmission Date: 20260118
  Serious: Yes (Other)
  Sender: FDA-CTU
  Company Number: None

PATIENT
  Sex: Female

DRUGS (4)
  1. DIMETHYL FUMARATE [Suspect]
     Active Substance: DIMETHYL FUMARATE
     Indication: Multiple sclerosis
     Dosage: FREQUENCY : TWICE A DAY;?
     Route: 048
     Dates: start: 20200915
  2. PROPRANOLOL CAP 60MG ER [Concomitant]
  3. VITAMIN  B-12TAB 2000MCG [Concomitant]
  4. VITAMIN D3 CHW 1000UNIT [Concomitant]

REACTIONS (4)
  - Tremor [None]
  - Mobility decreased [None]
  - Fall [None]
  - Breast cancer stage I [None]
